FAERS Safety Report 7705815-X (Version None)
Quarter: 2011Q3

REPORT INFORMATION
  Report Type: 
  Country: None (occurrence: None)
  Receive Date: 20110824
  Receipt Date: 20110815
  Transmission Date: 20111222
  Serious: Yes (Hospitalization, Other)
  Sender: FDA-Public Use
  Company Number: CA-ELI_LILLY_AND_COMPANY-CA201108004616

PATIENT
  Sex: Male

DRUGS (9)
  1. LORAZEPAM [Concomitant]
  2. ZYPREXA [Suspect]
     Indication: BIPOLAR DISORDER
     Dosage: 20 MG, QD
  3. SEROQUEL [Concomitant]
  4. ZYPREXA [Suspect]
     Dosage: 5 MG, UNK
  5. CLONAZEPAM [Concomitant]
  6. WELLBUTRIN SR [Concomitant]
  7. EFFEXOR XR [Concomitant]
  8. ZYPREXA [Suspect]
     Dosage: 2.5 MG, UNK
     Dates: start: 20020320
  9. AMITRIPTYLINE HCL [Concomitant]

REACTIONS (9)
  - DYSLIPIDAEMIA [None]
  - PANCREATITIS ACUTE [None]
  - LOSS OF CONSCIOUSNESS [None]
  - ABDOMINAL COMPARTMENT SYNDROME [None]
  - PANCYTOPENIA [None]
  - ANAEMIA [None]
  - ABDOMINAL ABSCESS [None]
  - HYPOGLYCAEMIA [None]
  - DIABETES MELLITUS [None]
